FAERS Safety Report 5626823-9 (Version None)
Quarter: 2008Q1

REPORT INFORMATION
  Report Type: 
  Country: None (occurrence: None)
  Receive Date: 20080212
  Receipt Date: 20080201
  Transmission Date: 20080703
  Serious: Yes (Hospitalization)
  Sender: FDA-Public Use
  Company Number: 231184J08USA

PATIENT
  Age: 40 Year
  Sex: Female
  Weight: 72.5755 kg

DRUGS (4)
  1. REBIF [Suspect]
     Indication: MULTIPLE SCLEROSIS
     Dosage: 44 MCG, 3 IN 1 WEEKS, SUBCUTANEOUS
     Route: 058
     Dates: start: 20060223
  2. LIPITOR [Concomitant]
  3. NEXIUM [Concomitant]
  4. LUNESTA [Concomitant]

REACTIONS (3)
  - CARBOHYDRATE ANTIGEN 125 INCREASED [None]
  - ROAD TRAFFIC ACCIDENT [None]
  - UTERINE LEIOMYOMA [None]
